FAERS Safety Report 9746899 (Version 2)
Quarter: 2013Q4

REPORT INFORMATION
  Report Type: Spontaneous
  Country: EE (occurrence: EE)
  Receive Date: 20131211
  Receipt Date: 20131217
  Transmission Date: 20140711
  Serious: Yes (Other)
  Sender: FDA-Public Use
  Company Number: EE-B.I. PHARMACEUTICALS,INC./RIDGEFIELD-2013-BI-40982EA

PATIENT
  Age: 73 Year
  Sex: Female

DRUGS (8)
  1. PRADAXA [Suspect]
     Indication: ATRIAL FIBRILLATION
     Dosage: 220 MG
     Route: 048
     Dates: start: 20121228
  2. PRADAXA [Suspect]
     Indication: CEREBROVASCULAR ACCIDENT PROPHYLAXIS
  3. INSULIN LEVEMIR [Concomitant]
     Indication: INSULIN-REQUIRING TYPE 2 DIABETES MELLITUS
     Route: 058
     Dates: start: 2000
  4. INSULIN NOVORAPID [Concomitant]
     Indication: INSULIN-REQUIRING TYPE 2 DIABETES MELLITUS
     Route: 058
     Dates: start: 2000
  5. BETALOCZOC/METOPROLOL [Concomitant]
     Indication: HYPERTENSION
     Dosage: 50 MG
     Route: 048
     Dates: start: 2012
  6. TWINSTA [Concomitant]
     Indication: HYPERTENSION
     Dosage: 80/10 MG
     Route: 048
     Dates: start: 2012
  7. CO-RANICOR [Concomitant]
     Indication: HYPERTENSION
     Dosage: 5/25 MG
     Route: 048
     Dates: start: 2008
  8. SIMVASTATIN [Concomitant]
     Indication: HYPERTENSION
     Dosage: 20 MG
     Route: 048
     Dates: start: 2012

REACTIONS (1)
  - Cerebrovascular accident [Not Recovered/Not Resolved]
